FAERS Safety Report 15610161 (Version 3)
Quarter: 2019Q2

REPORT INFORMATION
  Report Type: Report from Study
  Country: DE (occurrence: DE)
  Receive Date: 20181113
  Receipt Date: 20190506
  Transmission Date: 20190711
  Serious: Yes (Hospitalization, Other)
  Sender: FDA-Public Use
  Company Number: DE-ACCORD-091669

PATIENT
  Age: 55 Year
  Sex: Female

DRUGS (3)
  1. METHOTREXATE. [Suspect]
     Active Substance: METHOTREXATE
     Indication: RHEUMATOID ARTHRITIS
     Route: 065
     Dates: end: 201805
  2. RITUXIMAB. [Suspect]
     Active Substance: RITUXIMAB
     Indication: RHEUMATOID ARTHRITIS
     Route: 042
  3. DEKRISTOL [Concomitant]
     Active Substance: CHOLECALCIFEROL

REACTIONS (3)
  - Hydronephrosis [Unknown]
  - Ureteric stenosis [Recovered/Resolved]
  - Urinary tract obstruction [Unknown]

NARRATIVE: CASE EVENT DATE: 20170315
